FAERS Safety Report 8620057 (Version 3)
Quarter: 2012Q4

REPORT INFORMATION
  Report Type: Report from Study
  Country: US (occurrence: US)
  Receive Date: 20120618
  Receipt Date: 20121119
  Transmission Date: 20130627
  Serious: Yes (Hospitalization)
  Sender: FDA-Public Use
  Company Number: US-JNJFOC-20120605317

PATIENT
  Age: 16 Year
  Sex: Male
  Weight: 61.7 kg

DRUGS (9)
  1. REMICADE [Suspect]
     Indication: INFLAMMATORY BOWEL DISEASE
     Route: 042
     Dates: start: 20120221
  2. REMICADE [Suspect]
     Indication: INFLAMMATORY BOWEL DISEASE
     Route: 042
     Dates: start: 20120610
  3. PREDNISONE [Suspect]
     Indication: PRODUCT USED FOR UNKNOWN INDICATION
  4. 5-ASA [Concomitant]
     Route: 048
  5. HYDROCORTISONE [Concomitant]
  6. MAGNESIUM CITRATE [Concomitant]
  7. LANSOPRAZOL [Concomitant]
  8. ACETAMINOPHEN [Concomitant]
  9. DIPHENHYDRAMINE [Concomitant]

REACTIONS (2)
  - Nephrolithiasis [Recovered/Resolved]
  - Colitis ulcerative [Recovered/Resolved]
